FAERS Safety Report 9656441 (Version 3)
Quarter: 2013Q4

REPORT INFORMATION
  Report Type: Spontaneous
  Country: DE (occurrence: DE)
  Receive Date: 20131030
  Receipt Date: 20131212
  Transmission Date: 20140711
  Serious: Yes (Other)
  Sender: FDA-Public Use
  Company Number: DE-UCBSA-099331

PATIENT
  Sex: Female

DRUGS (3)
  1. NEUPRO [Suspect]
     Indication: PARKINSON^S DISEASE
     Dosage: 2MG, 2X2 MG
     Route: 062
     Dates: end: 20131016
  2. NEUPRO [Suspect]
     Indication: PARKINSON^S DISEASE
     Dosage: 4 MG
     Route: 062
     Dates: start: 20131016
  3. LEVOBETA [Concomitant]
     Dosage: 100/25

REACTIONS (5)
  - Cataract [Unknown]
  - Application site erythema [Unknown]
  - Acne [Unknown]
  - Wrong technique in drug usage process [Unknown]
  - Product adhesion issue [Unknown]
